FAERS Safety Report 25154872 (Version 1)
Quarter: 2025Q2

REPORT INFORMATION
  Report Type: Spontaneous
  Country: US (occurrence: None)
  Receive Date: 20250402
  Receipt Date: 20250402
  Transmission Date: 20250716
  Serious: Yes (Hospitalization)
  Sender: FDA-CTU
  Company Number: None

PATIENT
  Age: 62 Year
  Sex: Male

DRUGS (13)
  1. NUCALA [Suspect]
     Active Substance: MEPOLIZUMAB
     Indication: Asthma
     Route: 058
     Dates: start: 20240308
  2. ALBUTEROL HFA INH [Concomitant]
  3. ASPIRIN [Concomitant]
     Active Substance: ASPIRIN
  4. AZELASTINE 0.1% [Concomitant]
  5. FLONASE [Concomitant]
     Active Substance: FLUTICASONE PROPIONATE
  6. LOSARTAN [Concomitant]
     Active Substance: LOSARTAN
  7. METFORMIN [Concomitant]
     Active Substance: METFORMIN HYDROCHLORIDE
  8. PREDNISONE [Concomitant]
     Active Substance: PREDNISONE
  9. ESOMEPRAZOLE MAGNESIUM [Concomitant]
     Active Substance: ESOMEPRAZOLE MAGNESIUM
  10. MONTELUKAST [Concomitant]
     Active Substance: MONTELUKAST
  11. BREZTRI AERO SPHERE INHALER [Concomitant]
  12. MAGNESIUM [Concomitant]
     Active Substance: MAGNESIUM
  13. MULTIVITAMIN ADULTS 50+ [Concomitant]

REACTIONS (2)
  - Rib fracture [None]
  - Pneumothorax [None]

NARRATIVE: CASE EVENT DATE: 20250313
